FAERS Safety Report 14599793 (Version 1)
Quarter: 2018Q1

REPORT INFORMATION
  Report Type: Report from Study
  Country: None (occurrence: US)
  Receive Date: 20180305
  Receipt Date: 20180305
  Transmission Date: 20180509
  Serious: Yes (Death)
  Sender: FDA-Public Use
  Company Number: US-ABBVIE-18P-163-2276361-00

PATIENT
  Age: 70 Year
  Sex: Male

DRUGS (1)
  1. VENCLEXTA [Suspect]
     Active Substance: VENETOCLAX
     Indication: ACUTE MYELOID LEUKAEMIA RECURRENT
     Dosage: AS DIRECTED
     Route: 048
     Dates: start: 20180102

REACTIONS (1)
  - Death [Fatal]

NARRATIVE: CASE EVENT DATE: 20180214
